FAERS Safety Report 6246007-3 (Version None)
Quarter: 2009Q2

REPORT INFORMATION
  Report Type: 
  Country: None (occurrence: None)
  Receive Date: 20090626
  Receipt Date: 20081023
  Transmission Date: 20091009
  Serious: No
  Sender: FDA-Public Use
  Company Number: A0753515A

PATIENT
  Age: 56 Year
  Sex: Female

DRUGS (4)
  1. IMITREX [Suspect]
     Indication: MIGRAINE
     Dosage: 100MG AS REQUIRED
     Route: 048
     Dates: start: 19950101
  2. INDERAL [Concomitant]
  3. LIPITOR [Concomitant]
  4. IMITREX [Concomitant]
     Route: 058
     Dates: start: 19920101, end: 19950101

REACTIONS (1)
  - DRUG INEFFECTIVE [None]
